FAERS Safety Report 18039125 (Version 1)
Quarter: 2020Q3

REPORT INFORMATION
  Report Type: Spontaneous
  Country: US (occurrence: US)
  Receive Date: 20200717
  Receipt Date: 20200717
  Transmission Date: 20201103
  Serious: Yes (Other)
  Sender: FDA-Public Use
  Company Number: US-INTRA-CELLULAR THERAPIES, INC.-2020ICT00015

PATIENT
  Age: 30 Year
  Sex: Male

DRUGS (1)
  1. CAPLYTA [Suspect]
     Active Substance: LUMATEPERONE
     Indication: BIPOLAR II DISORDER
     Dosage: 1X/DAY
     Route: 048

REACTIONS (7)
  - Vision blurred [Unknown]
  - Muscle rigidity [Unknown]
  - Headache [Unknown]
  - Dyskinesia [Unknown]
  - Tardive dyskinesia [Unknown]
  - Hot flush [Unknown]
  - Product use in unapproved indication [Unknown]
